FAERS Safety Report 9536533 (Version 1)
Quarter: 2013Q3

REPORT INFORMATION
  Report Type: Spontaneous
  Country: US (occurrence: None)
  Receive Date: 20130917
  Receipt Date: 20130917
  Transmission Date: 20140515
  Serious: Yes (Life-Threatening, Disabling)
  Sender: FDA-Public Use
  Company Number: None

PATIENT
  Age: 60 Year
  Sex: Female
  Weight: 71.22 kg

DRUGS (1)
  1. GABAPENTIN [Suspect]
     Indication: NEUROPATHY PERIPHERAL
     Dosage: GRADUATED DOSE 300MG-1200MG THREE TIMES DAILY TAKEN BY MOUTH
     Route: 048
     Dates: start: 20130913, end: 20130914

REACTIONS (13)
  - Tachypnoea [None]
  - Hypopnoea [None]
  - Migraine [None]
  - Heart rate increased [None]
  - Eye movement disorder [None]
  - Excessive eye blinking [None]
  - Disturbance in attention [None]
  - Incoherent [None]
  - Dizziness [None]
  - Muscular weakness [None]
  - Somnolence [None]
  - Dry mouth [None]
  - Pain [None]
